FAERS Safety Report 10548101 (Version 2)
Quarter: 2014Q4

REPORT INFORMATION
  Report Type: Report from Study
  Country: CA (occurrence: CA)
  Receive Date: 20141028
  Receipt Date: 20141028
  Transmission Date: 20150529
  Serious: Yes (Death)
  Sender: FDA-Public Use
  Company Number: PHHY2011CA96428

PATIENT
  Age: 74 Year
  Sex: Male

DRUGS (2)
  1. SANDOSTATIN LAR DEPOT [Suspect]
     Active Substance: OCTREOTIDE ACETATE
     Indication: CARCINOID TUMOUR
     Dosage: 30 MG, EVERY 4 WEEKS
     Route: 030
     Dates: start: 20110830
  2. SANDOSTATIN LAR DEPOT [Suspect]
     Active Substance: OCTREOTIDE ACETATE
     Dosage: 40 MG, EVERY 4 WEEKS
     Route: 030

REACTIONS (15)
  - Decreased appetite [Recovering/Resolving]
  - Blood pressure diastolic decreased [Unknown]
  - Asthenia [Unknown]
  - Body temperature decreased [Unknown]
  - Blood pressure increased [Unknown]
  - Localised oedema [Unknown]
  - Sleep disorder [Unknown]
  - Nasopharyngitis [Unknown]
  - Gastroenteritis [Unknown]
  - Weight decreased [Unknown]
  - Pain [Recovered/Resolved]
  - Drug ineffective [Unknown]
  - Malaise [Unknown]
  - Death [Fatal]
  - Nausea [Unknown]

NARRATIVE: CASE EVENT DATE: 20120930
